FAERS Safety Report 26052139 (Version 1)
Quarter: 2025Q4

REPORT INFORMATION
  Report Type: Spontaneous
  Country: KR (occurrence: KR)
  Receive Date: 20251117
  Receipt Date: 20251117
  Transmission Date: 20260118
  Serious: Yes (Hospitalization, Other)
  Sender: CELLTRION
  Company Number: KR-CELLTRION INC.-2025KR041453

PATIENT

DRUGS (2)
  1. BEVACIZUMAB [Suspect]
     Active Substance: BEVACIZUMAB
     Indication: Hepatocellular carcinoma
     Dosage: EVERY 3 WEEKS FOR A TOTAL OF 17 CYCLES (MOST RECENT ADMINISTRATION OCCURRING 1 MONTH BEFORE ADMISSIO
  2. ATEZOLIZUMAB [Suspect]
     Active Substance: ATEZOLIZUMAB
     Indication: Hepatocellular carcinoma
     Dosage: EVERY 3 WEEKS FOR A TOTAL OF 17 CYCLES (MOST RECENT ADMINISTRATION OCCURRING 1 MONTH BEFORE ADMISSIO

REACTIONS (3)
  - Cerebral microhaemorrhage [Unknown]
  - Encephalopathy [Unknown]
  - Intentional product use issue [Unknown]
